FAERS Safety Report 6426723-0 (Version None)
Quarter: 2009Q4

REPORT INFORMATION
  Report Type: 
  Country: None (occurrence: None)
  Receive Date: 20091104
  Receipt Date: 20091028
  Transmission Date: 20100525
  Serious: Yes (Other)
  Sender: FDA-Public Use
  Company Number: GB-ELI_LILLY_AND_COMPANY-GB200910007500

PATIENT
  Sex: Female

DRUGS (13)
  1. BYETTA [Suspect]
     Dosage: 10 UG, UNKNOWN
     Route: 065
     Dates: start: 20090101
  2. MIRTAZAPINE [Concomitant]
  3. PROCHLORPERAZINE [Concomitant]
  4. FIBRATES [Concomitant]
  5. FUROSEMIDE [Concomitant]
  6. METFORMIN [Concomitant]
  7. LANSOPRAZOLE [Concomitant]
  8. ASPIRIN [Concomitant]
  9. SIMVASTATIN [Concomitant]
  10. CANDESARTAN CILEXETIL [Concomitant]
  11. GLICLAZIDE [Concomitant]
  12. HEXOBENDINE [Concomitant]
  13. TROSPIUM [Concomitant]

REACTIONS (2)
  - AGGRESSION [None]
  - DEMENTIA [None]
